FAERS Safety Report 18940827 (Version 1)
Quarter: 2021Q1

REPORT INFORMATION
  Report Type: Spontaneous
  Country: US (occurrence: US)
  Receive Date: 20210225
  Receipt Date: 20210225
  Transmission Date: 20210420
  Serious: No
  Sender: FDA-Public Use
  Company Number: None

PATIENT
  Age: 72 Year
  Sex: Male
  Weight: 97.52 kg

DRUGS (2)
  1. NORMAL SALINE [Suspect]
     Active Substance: SODIUM CHLORIDE
  2. DEVICE [Suspect]
     Active Substance: DEVICE

REACTIONS (9)
  - Device infusion issue [None]
  - Electrocardiogram ST segment elevation [None]
  - Complication associated with device [None]
  - Incorrect drug administration rate [None]
  - Cardiac procedure complication [None]
  - Aortic embolus [None]
  - Device malfunction [None]
  - Heart rate increased [None]
  - Air embolism [None]

NARRATIVE: CASE EVENT DATE: 20210222
